FAERS Safety Report 7004221-3 (Version None)
Quarter: 2010Q3

REPORT INFORMATION
  Report Type: 
  Country: None (occurrence: None)
  Receive Date: 20100920
  Receipt Date: 20100223
  Transmission Date: 20110219
  Serious: No
  Sender: FDA-Public Use
  Company Number: US-WYE-H13796410

PATIENT
  Sex: Male
  Weight: 77.18 kg

DRUGS (4)
  1. PRISTIQ [Suspect]
     Indication: DEPRESSION
     Route: 048
     Dates: start: 20091201
  2. PRISTIQ [Suspect]
     Indication: ANXIETY
  3. TRAZODONE HCL [Concomitant]
  4. ALLOPURINOL [Concomitant]

REACTIONS (2)
  - BURNING SENSATION [None]
  - MUSCLE SPASMS [None]
